FAERS Safety Report 21555489 (Version 2)
Quarter: 2022Q4

REPORT INFORMATION
  Report Type: Spontaneous
  Country: US (occurrence: US)
  Receive Date: 20221104
  Receipt Date: 20221119
  Transmission Date: 20230113
  Serious: Yes (Hospitalization)
  Sender: FDA-Public Use
  Company Number: US-TEVA-2022-US-2822750

PATIENT
  Age: 60 Year
  Sex: Female

DRUGS (1)
  1. HYDROXYCHLOROQUINE [Suspect]
     Active Substance: HYDROXYCHLOROQUINE
     Indication: Suicide attempt
     Dosage: THE PATIENT INGESTED 10-15 TABLETS OF HYDROXYCHLOROQUINE 200MG IN A SUICIDE ATTEMPT.
     Route: 048

REACTIONS (4)
  - Mental status changes [Recovering/Resolving]
  - Electrocardiogram QT prolonged [Recovered/Resolved]
  - Hypokalaemia [Recovering/Resolving]
  - Intentional overdose [Unknown]
